FAERS Safety Report 10006320 (Version 2)
Quarter: 2014Q3

REPORT INFORMATION
  Report Type: Spontaneous
  Country: US (occurrence: US)
  Receive Date: 20140313
  Receipt Date: 20140909
  Transmission Date: 20150326
  Serious: Yes (Death, Hospitalization)
  Sender: FDA-Public Use
  Company Number: US-BAYER-2014-036326

PATIENT
  Age: 37 Year
  Sex: Female
  Weight: 104.31 kg

DRUGS (7)
  1. CECLOR [Concomitant]
     Active Substance: CEFACLOR
     Dosage: UNK
     Route: 048
     Dates: start: 20091024
  2. FLUOXETINE [Concomitant]
     Active Substance: FLUOXETINE\FLUOXETINE HYDROCHLORIDE
     Dosage: 20 MG, UNK
     Route: 048
     Dates: start: 20090706, end: 20090930
  3. CEFACLOR. [Concomitant]
     Active Substance: CEFACLOR
     Dosage: 500 MG, UNK
     Dates: start: 20091022
  4. HYDROCODONE/ACETAMINOPHEN [Concomitant]
     Active Substance: ACETAMINOPHEN\HYDROCODONE
     Dosage: UNK
     Route: 048
     Dates: start: 20091024
  5. NAPROXEN SODIUM. [Concomitant]
     Active Substance: NAPROXEN SODIUM
     Indication: PAIN
     Dosage: 550 MG, UNK
     Dates: start: 20091022
  6. YAZ [Suspect]
     Active Substance: DROSPIRENONE\ETHINYL ESTRADIOL
     Dosage: UNK
     Dates: start: 2008, end: 2009
  7. PROZAC [Concomitant]
     Active Substance: FLUOXETINE HYDROCHLORIDE
     Dosage: UNK
     Route: 048
     Dates: start: 20091024

REACTIONS (8)
  - Migraine [None]
  - Abdominal pain [None]
  - Deformity [None]
  - Cerebral haemorrhage [Fatal]
  - Vomiting [None]
  - Headache [Fatal]
  - Injury [Fatal]
  - General physical health deterioration [Fatal]

NARRATIVE: CASE EVENT DATE: 200910
